FAERS Safety Report 24989554 (Version 1)
Quarter: 2025Q1

REPORT INFORMATION
  Report Type: Spontaneous
  Country: US (occurrence: US)
  Receive Date: 20250220
  Receipt Date: 20250220
  Transmission Date: 20250409
  Serious: No
  Sender: TEVA
  Company Number: US-TEVA-VS-3294617

PATIENT
  Sex: Female

DRUGS (1)
  1. ATORVASTATIN CALCIUM [Suspect]
     Active Substance: ATORVASTATIN CALCIUM
     Indication: Hyperlipidaemia
     Route: 065

REACTIONS (6)
  - Epigastric discomfort [Unknown]
  - Oesophagitis [Unknown]
  - Increased viscosity of upper respiratory secretion [Unknown]
  - Respiratory tract irritation [Unknown]
  - Infection [Unknown]
  - Cough [Unknown]
